FAERS Safety Report 7603560-2 (Version None)
Quarter: 2011Q3

REPORT INFORMATION
  Report Type: 
  Country: None (occurrence: None)
  Receive Date: 20110711
  Receipt Date: 20110711
  Transmission Date: 20111222
  Serious: Yes (Death)
  Sender: FDA-Public Use
  Company Number: None

PATIENT
  Age: 48 Year
  Sex: Male
  Weight: 81.2 kg

DRUGS (6)
  1. ANDRODERM [Concomitant]
  2. TYLENOL-500 [Concomitant]
  3. PREZISTA [Suspect]
     Indication: HIV INFECTION
     Dosage: 800 MG QD ORAL
     Route: 048
     Dates: start: 20100707
  4. ACYCLOVIR [Concomitant]
  5. TRUVADA [Suspect]
     Indication: HIV INFECTION
     Dosage: 200/300 MG QD ORAL
     Route: 048
     Dates: start: 20100707
  6. MULTI-VITAMIN [Concomitant]

REACTIONS (1)
  - DEATH [None]
